FAERS Safety Report 6064356-9 (Version None)
Quarter: 2009Q1

REPORT INFORMATION
  Report Type: 
  Country: None (occurrence: None)
  Receive Date: 20090203
  Receipt Date: 20090203
  Transmission Date: 20090719
  Serious: Yes (Life-Threatening)
  Sender: FDA-Public Use
  Company Number: None

PATIENT
  Age: 67 Year
  Sex: Male
  Weight: 102.5129 kg

DRUGS (2)
  1. GLUCOPHAGE [Suspect]
     Dosage: 500 MG ONE DAILY PO
     Route: 048
     Dates: start: 20080701, end: 20080730
  2. METFORMIN HCL [Suspect]
     Dosage: 500MG ONE DAILY PO
     Route: 048
     Dates: start: 20080801, end: 20080830

REACTIONS (2)
  - DIARRHOEA [None]
  - VOMITING [None]
